FAERS Safety Report 9851800 (Version 1)
Quarter: 2014Q1

REPORT INFORMATION
  Report Type: Spontaneous
  Country: IT (occurrence: IT)
  Receive Date: 20140129
  Receipt Date: 20140129
  Transmission Date: 20141002
  Serious: Yes (Hospitalization)
  Sender: FDA-Public Use
  Company Number: IT-BAYER-2014-011655

PATIENT
  Age: 52 Year
  Sex: Female

DRUGS (3)
  1. BETAFERON [Suspect]
     Indication: MULTIPLE SCLEROSIS
     Dosage: 250 ?G, QOD
     Route: 058
     Dates: start: 201311
  2. OMEPRAZOLE [Suspect]
     Indication: GASTRITIS
     Dosage: 20 MG, PRN
     Route: 048
  3. TEGRETOL [Suspect]
     Indication: TRIGEMINAL NEURALGIA
     Dosage: 400 MG, PRN
     Route: 048
     Dates: start: 20130801, end: 20131212

REACTIONS (2)
  - Dermatitis exfoliative [Recovering/Resolving]
  - Polymorphic light eruption [Recovering/Resolving]
